FAERS Safety Report 6216235-1 (Version None)
Quarter: 2009Q2

REPORT INFORMATION
  Report Type: 
  Country: None (occurrence: None)
  Receive Date: 20090605
  Receipt Date: 20090526
  Transmission Date: 20091009
  Serious: Yes (Hospitalization)
  Sender: FDA-Public Use
  Company Number: A0788679A

PATIENT
  Age: 46 Year
  Sex: Male
  Weight: 81.8 kg

DRUGS (8)
  1. AVANDIA [Suspect]
     Indication: DIABETES MELLITUS
     Dosage: 8MG PER DAY
     Route: 048
     Dates: start: 20010901, end: 20070525
  2. METFORMIN HYDROCHLORIDE [Concomitant]
  3. INSULIN [Concomitant]
  4. GLUCOTROL [Concomitant]
  5. ZOLOFT [Concomitant]
  6. ALPRAZOLAM [Concomitant]
  7. RANITIDINE [Concomitant]
  8. ALBUTEROL [Concomitant]

REACTIONS (2)
  - CEREBROVASCULAR ACCIDENT [None]
  - MYOCARDIAL INFARCTION [None]
